FAERS Safety Report 23815597 (Version 2)
Quarter: 2024Q2

REPORT INFORMATION
  Report Type: Spontaneous
  Country: US (occurrence: US)
  Receive Date: 20240503
  Receipt Date: 20240523
  Transmission Date: 20240716
  Serious: No
  Sender: FDA-Public Use
  Company Number: US-BRISTOL-MYERS SQUIBB COMPANY-2024-066511

PATIENT
  Age: 68 Year
  Sex: Male

DRUGS (12)
  1. REVLIMID [Suspect]
     Active Substance: LENALIDOMIDE
     Indication: Plasma cell myeloma
     Dates: start: 20230720
  2. REVLIMID [Suspect]
     Active Substance: LENALIDOMIDE
  3. TAMSULOSIN [Concomitant]
     Active Substance: TAMSULOSIN
     Route: 048
  4. SEVELAMER [Concomitant]
     Active Substance: SEVELAMER
     Route: 048
  5. FOLIC ACID [Concomitant]
     Active Substance: FOLIC ACID
     Route: 048
  6. DEXAMETHASONE [Concomitant]
     Active Substance: DEXAMETHASONE
     Route: 048
  7. SULFAMETHOXAZOLE\TRIMETHOPRIM [Concomitant]
     Active Substance: SULFAMETHOXAZOLE\TRIMETHOPRIM
     Dosage: 400-80
  8. ACYCLOVIR [Concomitant]
     Active Substance: ACYCLOVIR
     Route: 048
  9. CALCIUM GLUCONATE [Concomitant]
     Active Substance: CALCIUM GLUCONATE
     Route: 048
  10. MELOXICAM [Concomitant]
     Active Substance: MELOXICAM
     Route: 048
  11. TADALAFIL [Concomitant]
     Active Substance: TADALAFIL
     Route: 048
  12. TIZANIDINE [Concomitant]
     Active Substance: TIZANIDINE
     Route: 048

REACTIONS (5)
  - Joint swelling [Not Recovered/Not Resolved]
  - Dehydration [Not Recovered/Not Resolved]
  - Off label use [Unknown]
  - Blood creatine increased [Unknown]
  - Hyperglycaemia [Unknown]

NARRATIVE: CASE EVENT DATE: 20240403
